FAERS Safety Report 15597139 (Version 1)
Quarter: 2018Q4

REPORT INFORMATION
  Report Type: Spontaneous
  Country: US (occurrence: US)
  Receive Date: 20181102
  Receipt Date: 20181102
  Transmission Date: 20190205
  Serious: No
  Sender: FDA-Public Use
  Company Number: None

PATIENT
  Age: 63 Year
  Sex: Male
  Weight: 117 kg

DRUGS (1)
  1. LORAZEPAM. [Suspect]
     Active Substance: LORAZEPAM
     Route: 042
     Dates: start: 20180808, end: 20180808

REACTIONS (8)
  - Tremor [None]
  - Somnolence [None]
  - Mental status changes [None]
  - Dizziness [None]
  - Cerebrovascular accident [None]
  - Malaise [None]
  - Depressed level of consciousness [None]
  - Sedation [None]

NARRATIVE: CASE EVENT DATE: 20180808
